FAERS Safety Report 5909173-2 (Version None)
Quarter: 2008Q4

REPORT INFORMATION
  Report Type: 
  Country: None (occurrence: None)
  Receive Date: 20081006
  Receipt Date: 20080924
  Transmission Date: 20090506
  Serious: Yes (Other)
  Sender: FDA-Public Use
  Company Number: US-PFIZER INC-2008071341

PATIENT
  Sex: Female
  Weight: 56.7 kg

DRUGS (8)
  1. ZOLOFT [Suspect]
     Indication: ANXIETY
     Route: 048
     Dates: start: 20080610, end: 20080814
  2. ZOLOFT [Suspect]
     Indication: MOOD SWINGS
  3. ZOLOFT [Suspect]
     Indication: DEPRESSION
  4. BACTROBAN [Concomitant]
     Dates: start: 20080721, end: 20080813
  5. SEPTRA DS [Concomitant]
     Route: 048
     Dates: start: 20080701, end: 20080813
  6. MINOCIN [Concomitant]
  7. YEAST [Concomitant]
     Dates: start: 20080701
  8. ALL OTHER THERAPEUTIC PRODUCTS [Concomitant]
     Route: 048

REACTIONS (5)
  - INCREASED TENDENCY TO BRUISE [None]
  - INFECTION [None]
  - INJURY [None]
  - OVERDOSE [None]
  - WOUND INFECTION STAPHYLOCOCCAL [None]
